FAERS Safety Report 5045036-5 (Version None)
Quarter: 2006Q3

REPORT INFORMATION
  Report Type: 
  Country: None (occurrence: None)
  Receive Date: 20060705
  Receipt Date: 20060620
  Transmission Date: 20061208
  Serious: Yes (Other)
  Sender: FDA-Public Use
  Company Number: 2006-125

PATIENT
  Age: 38 Year
  Sex: Male

DRUGS (1)
  1. CITALOPRAM [Suspect]
     Indication: DEPRESSION
     Dosage: 300MG ORALLY
     Route: 048

REACTIONS (3)
  - ALCOHOL USE [None]
  - OVERDOSE [None]
  - SEDATION [None]
